FAERS Safety Report 4280792-5 (Version None)
Quarter: 2004Q1

REPORT INFORMATION
  Report Type: 
  Country: None (occurrence: None)
  Receive Date: 20040128
  Receipt Date: 20040128
  Transmission Date: 20041129
  Serious: Yes (Hospitalization)
  Sender: FDA-Public Use
  Company Number: None

PATIENT
  Sex: Male
  Weight: 91.173 kg

DRUGS (2)
  1. SIMVASTATIN [Suspect]
     Indication: BLOOD CHOLESTEROL INCREASED
     Dosage: 80  MG EVERY EVEN ORAL
     Route: 048
     Dates: start: 20031106, end: 20031217
  2. SIMVASTATIN [Suspect]
     Indication: LOW DENSITY LIPOPROTEIN INCREASED
     Dosage: 80  MG EVERY EVEN ORAL
     Route: 048
     Dates: start: 20031106, end: 20031217

REACTIONS (7)
  - ABASIA [None]
  - ASTHENIA [None]
  - CHEST PAIN [None]
  - DYSPNOEA [None]
  - HAEMODIALYSIS [None]
  - MYALGIA [None]
  - RESPIRATORY DISORDER [None]
